FAERS Safety Report 12422960 (Version 1)
Quarter: 2016Q2

REPORT INFORMATION
  Report Type: Spontaneous
  Country: US (occurrence: None)
  Receive Date: 20160531
  Receipt Date: 20160531
  Transmission Date: 20160815
  Serious: Yes (Life-Threatening, Hospitalization, Disabling, Other)
  Sender: FDA-Public Use
  Company Number: None

PATIENT
  Age: 62 Year
  Sex: Male
  Weight: 102.06 kg

DRUGS (8)
  1. FLOMAX [Concomitant]
     Active Substance: TAMSULOSIN HYDROCHLORIDE
  2. VITAMIN D [Concomitant]
     Active Substance: CHOLECALCIFEROL
  3. ZOLOFT [Concomitant]
     Active Substance: SERTRALINE HYDROCHLORIDE
  4. LOSARTEN [Concomitant]
     Active Substance: LOSARTAN
  5. XELJANZ [Concomitant]
     Active Substance: TOFACITINIB CITRATE
  6. GENERIC LEVAQUIN 500 MG DR REDDYS [Suspect]
     Active Substance: LEVOFLOXACIN
  7. LEVOFLOXACIN. [Suspect]
     Active Substance: LEVOFLOXACIN
     Indication: SINUSITIS
     Route: 048
     Dates: start: 20130629, end: 20130705
  8. AVORSTATIN [Concomitant]

REACTIONS (5)
  - Walking aid user [None]
  - Aortic aneurysm [None]
  - Pain in extremity [None]
  - Peripheral swelling [None]
  - Tendon rupture [None]

NARRATIVE: CASE EVENT DATE: 20140404
